FAERS Safety Report 10540797 (Version 1)
Quarter: 2014Q4

REPORT INFORMATION
  Report Type: Spontaneous
  Country: ES (occurrence: ES)
  Receive Date: 20141024
  Receipt Date: 20141024
  Transmission Date: 20150529
  Serious: Yes (Other)
  Sender: FDA-Public Use
  Company Number: ES-SA-2014SA141262

PATIENT
  Age: 46 Year
  Sex: Female
  Weight: 50 kg

DRUGS (1)
  1. RIFALDIN [Suspect]
     Active Substance: RIFAMPIN
     Route: 042
     Dates: start: 20140707

REACTIONS (4)
  - Gamma-glutamyltransferase increased [Recovered/Resolved]
  - Aphthous stomatitis [Recovered/Resolved]
  - Nausea [Recovered/Resolved]
  - Decreased appetite [Recovered/Resolved]

NARRATIVE: CASE EVENT DATE: 20140707
